FAERS Safety Report 19955280 (Version 1)
Quarter: 2021Q4

REPORT INFORMATION
  Report Type: Spontaneous
  Country: IN (occurrence: IN)
  Receive Date: 20211014
  Receipt Date: 20211014
  Transmission Date: 20220303
  Serious: Yes (Other)
  Sender: FDA-Public Use
  Company Number: IN-ABBVIE-21K-078-4113271-00

PATIENT
  Age: 45 Year
  Sex: Female

DRUGS (9)
  1. VALPROATE [Suspect]
     Active Substance: VALPROIC ACID
     Indication: Product used for unknown indication
     Route: 065
  2. CLOZAPINE [Suspect]
     Active Substance: CLOZAPINE
     Indication: Schizoaffective disorder
     Dosage: DOSE INCREASED
     Route: 065
     Dates: start: 201610, end: 201701
  3. CLOZAPINE [Suspect]
     Active Substance: CLOZAPINE
     Dosage: DOSE REDUCED
     Route: 065
  4. CLOZAPINE [Suspect]
     Active Substance: CLOZAPINE
     Route: 065
     Dates: start: 201605, end: 201610
  5. ZUCLOPENTHIXOL [Concomitant]
     Active Substance: ZUCLOPENTHIXOL
     Indication: Product used for unknown indication
     Route: 050
     Dates: start: 201610
  6. LITHIUM [Concomitant]
     Active Substance: LITHIUM
     Indication: Product used for unknown indication
  7. LORAZEPAM [Concomitant]
     Active Substance: LORAZEPAM
     Indication: Product used for unknown indication
  8. RISPERIDONE [Concomitant]
     Active Substance: RISPERIDONE
     Indication: Product used for unknown indication
  9. QUETIAPINE [Concomitant]
     Active Substance: QUETIAPINE
     Indication: Product used for unknown indication

REACTIONS (4)
  - Hypersexuality [Recovering/Resolving]
  - Exhibitionism [Recovering/Resolving]
  - Libido increased [Recovering/Resolving]
  - Hyperammonaemia [Unknown]

NARRATIVE: CASE EVENT DATE: 20161001
